FAERS Safety Report 6199268-3 (Version None)
Quarter: 2009Q2

REPORT INFORMATION
  Report Type: 
  Country: None (occurrence: None)
  Receive Date: 20090519
  Receipt Date: 20090508
  Transmission Date: 20091009
  Serious: Yes (Other)
  Sender: FDA-Public Use
  Company Number: TPG2009A00536

PATIENT
  Sex: Female

DRUGS (1)
  1. ACTOS [Suspect]
     Indication: DIABETES MELLITUS
     Dosage: 30 MG (UNK., UNKNOWN) PER ORAL 15 MG (UNK., UNKNOWN) PER ORAL
     Route: 048
     Dates: start: 20050101

REACTIONS (3)
  - GLYCOSYLATED HAEMOGLOBIN INCREASED [None]
  - NEUROPATHIC ARTHROPATHY [None]
  - WEIGHT INCREASED [None]
